FAERS Safety Report 6642499-6 (Version None)
Quarter: 2010Q1

REPORT INFORMATION
  Report Type: 
  Country: None (occurrence: None)
  Receive Date: 20100319
  Receipt Date: 20100310
  Transmission Date: 20100710
  Serious: Yes (Hospitalization)
  Sender: FDA-Public Use
  Company Number: JP-JNJFOC-20090404165

PATIENT
  Sex: Male
  Weight: 58 kg

DRUGS (9)
  1. REMICADE [Suspect]
     Indication: ENTEROCUTANEOUS FISTULA
     Route: 042
  2. REMICADE [Suspect]
     Dosage: THE PATIENT HAD A TOTAL OF 2 INFUSIONS
     Route: 042
  3. REMICADE [Suspect]
     Indication: CROHN'S DISEASE
     Dosage: THE PATIENT HAD A TOTAL OF 2 INFUSIONS
     Route: 042
  4. REMICADE [Suspect]
     Route: 042
  5. DAI-KENCHU-TO [Concomitant]
     Indication: CROHN'S DISEASE
     Route: 048
  6. TAKEPRON [Concomitant]
     Indication: CROHN'S DISEASE
     Route: 048
  7. PENTASA [Concomitant]
     Indication: CROHN'S DISEASE
     Route: 048
  8. ELENTAL [Concomitant]
     Indication: CROHN'S DISEASE
     Route: 048
  9. RACOL [Concomitant]
     Indication: CROHN'S DISEASE
     Route: 048

REACTIONS (1)
  - HERPES ZOSTER [None]
